FAERS Safety Report 5966004-2 (Version None)
Quarter: 2008Q4

REPORT INFORMATION
  Report Type: 
  Country: None (occurrence: None)
  Receive Date: 20081125
  Receipt Date: 20081111
  Transmission Date: 20090506
  Serious: Yes (Hospitalization)
  Sender: FDA-Public Use
  Company Number: SE-GENENTECH-271476

PATIENT
  Sex: Male

DRUGS (7)
  1. LUCENTIS [Suspect]
     Indication: MACULAR DEGENERATION
     Dosage: 10 MG/ML, UNK
     Route: 031
     Dates: start: 20070214, end: 20070214
  2. LUCENTIS [Suspect]
     Dosage: 10 MG/ML, UNK
     Route: 031
     Dates: start: 20070314, end: 20070314
  3. LUCENTIS [Suspect]
     Dosage: 10 MG/ML, UNK
     Route: 031
     Dates: start: 20070530, end: 20070530
  4. PLAVIX [Concomitant]
     Indication: DRUG USE FOR UNKNOWN INDICATION
  5. TROMBYL [Concomitant]
     Indication: DRUG USE FOR UNKNOWN INDICATION
  6. SELOKEN [Concomitant]
     Indication: DRUG USE FOR UNKNOWN INDICATION
  7. SIMVASTATIN [Concomitant]
     Indication: DRUG USE FOR UNKNOWN INDICATION

REACTIONS (1)
  - MYOCARDIAL INFARCTION [None]
